FAERS Safety Report 8333987 (Version 2)
Quarter: 2013Q2

REPORT INFORMATION
  Report Type: Spontaneous
  Country: US (occurrence: None)
  Receive Date: 20111130
  Receipt Date: 20120731
  Transmission Date: 20140414
  Serious: Yes (Other)
  Sender: FDA-Public Use
  Company Number: US201107004513

PATIENT
  Age: 64 Year
  Sex: Female

DRUGS (3)
  1. BYETTA [Suspect]
     Route: 058
     Dates: start: 20051216, end: 20090806
  2. METFORMIN (METFORMIN) [Concomitant]
  3. ATENOLOL (ATENOLOL) [Concomitant]

REACTIONS (4)
  - PANCREATITIS [None]
  - RENAL FAILURE [None]
  - Pancreatitis acute [None]
  - Renal failure acute [None]
